FAERS Safety Report 10503859 (Version 5)
Quarter: 2014Q4

REPORT INFORMATION
  Report Type: Spontaneous
  Country: US (occurrence: US)
  Receive Date: 20141008
  Receipt Date: 20141204
  Transmission Date: 20150528
  Serious: No
  Sender: FDA-Public Use
  Company Number: US-PFIZER INC-2014273578

PATIENT
  Age: 38 Year
  Sex: Female

DRUGS (4)
  1. NEURONTIN [Suspect]
     Active Substance: GABAPENTIN
     Indication: PERIPHERAL NERVE INJURY
     Dosage: 3200 MG, DAILY (1200MG MORNING, 1200MG AFTERNOON, 800MG EVENING)
     Dates: start: 201308
  2. NEURONTIN [Suspect]
     Active Substance: GABAPENTIN
     Dosage: 800 MG, 4X/DAY
     Route: 048
     Dates: start: 20140303
  3. BUPROPION [Concomitant]
     Active Substance: BUPROPION
     Dosage: 150 MG, 2X/DAY
     Dates: start: 2004
  4. DIGESTIVE ADVANTAGE FOR LACTOSE INTOLERANCE [Concomitant]
     Indication: LACTOSE INTOLERANCE
     Dosage: UNK
     Dates: start: 2001

REACTIONS (7)
  - Flank pain [Unknown]
  - Micturition urgency [Unknown]
  - Renal pain [Not Recovered/Not Resolved]
  - Pollakiuria [Unknown]
  - Haematuria [Unknown]
  - Renal disorder [Not Recovered/Not Resolved]
  - Urinary tract infection [Not Recovered/Not Resolved]

NARRATIVE: CASE EVENT DATE: 201401
